FAERS Safety Report 4633921-5 (Version None)
Quarter: 2005Q2

REPORT INFORMATION
  Report Type: 
  Country: None (occurrence: None)
  Receive Date: 20050412
  Receipt Date: 20050412
  Transmission Date: 20051028
  Serious: Yes (Other)
  Sender: FDA-Public Use
  Company Number: None

PATIENT

DRUGS (6)
  1. GABAPENTIN [Suspect]
     Indication: NEUROPATHY PERIPHERAL
     Dosage: 300 MG PO * DAILY
     Route: 048
  2. HYDROCHLOROTHIAZIDE [Concomitant]
  3. MYSOLINE [Concomitant]
  4. ATENOLOL [Concomitant]
  5. K-DUR 10 [Concomitant]
  6. VIT B12 [Concomitant]

REACTIONS (2)
  - MUSCLE SPASMS [None]
  - PHARMACEUTICAL PRODUCT COMPLAINT [None]
